FAERS Safety Report 15882900 (Version 1)
Quarter: 2019Q1

REPORT INFORMATION
  Report Type: Spontaneous
  Country: US (occurrence: US)
  Receive Date: 20190129
  Receipt Date: 20190129
  Transmission Date: 20190417
  Serious: Yes (Other)
  Sender: FDA-Public Use
  Company Number: US-APOTEX-2019AP006757

PATIENT
  Age: 77 Year
  Sex: Male

DRUGS (6)
  1. IMATINIB. [Suspect]
     Active Substance: IMATINIB MESYLATE
     Indication: HYPEREOSINOPHILIC SYNDROME
     Dosage: UNK
     Route: 065
  2. PREDNISONE. [Suspect]
     Active Substance: PREDNISONE
     Indication: HYPEREOSINOPHILIC SYNDROME
     Dosage: 20 MG, UNK
     Route: 048
  3. INTERFERON [Suspect]
     Active Substance: INTERFERON
     Indication: HYPEREOSINOPHILIC SYNDROME
     Route: 065
  4. PREDNISONE. [Suspect]
     Active Substance: PREDNISONE
     Dosage: 80 MG, UNK
     Route: 048
  5. FLUOCINOLONE [Suspect]
     Active Substance: FLUOCINOLONE
     Indication: HYPEREOSINOPHILIC SYNDROME
     Route: 065
  6. HYDROXYZINE [Suspect]
     Active Substance: HYDROXYZINE HYDROCHLORIDE
     Indication: HYPEREOSINOPHILIC SYNDROME
     Route: 065

REACTIONS (2)
  - Adverse drug reaction [Unknown]
  - Drug ineffective [Unknown]
